FAERS Safety Report 17398248 (Version 2)
Quarter: 2021Q4

REPORT INFORMATION
  Report Type: Spontaneous
  Country: DE (occurrence: DE)
  Receive Date: 20200210
  Receipt Date: 20211214
  Transmission Date: 20220304
  Serious: Yes (Hospitalization)
  Sender: FDA-Public Use
  Company Number: DE-ACCORD-163703

PATIENT
  Age: 23 Year
  Sex: Female

DRUGS (1)
  1. PEGFILGRASTIM [Suspect]
     Active Substance: PEGFILGRASTIM
     Indication: Product used for unknown indication
     Dosage: UNK
     Dates: start: 20191118

REACTIONS (3)
  - Tachycardia [Unknown]
  - Hypovolaemia [Unknown]
  - Palpitations [Unknown]

NARRATIVE: CASE EVENT DATE: 20191118
